FAERS Safety Report 4748806-3 (Version None)
Quarter: 2005Q3

REPORT INFORMATION
  Report Type: 
  Country: None (occurrence: None)
  Receive Date: 20050819
  Receipt Date: 20050809
  Transmission Date: 20060218
  Serious: Yes (Other)
  Sender: FDA-Public Use
  Company Number: PHEH2005US08873

PATIENT
  Age: 74 Year
  Sex: Female
  Weight: 73 kg

DRUGS (1)
  1. ZOMETA [Suspect]
     Indication: METASTASES TO BONE
     Dosage: 4 MG Q3WKS
     Dates: start: 20040818, end: 20050609

REACTIONS (4)
  - BONE OPERATION [None]
  - CYST [None]
  - CYST REMOVAL [None]
  - IMPAIRED HEALING [None]
